FAERS Safety Report 6493258-9 (Version None)
Quarter: 2009Q4

REPORT INFORMATION
  Report Type: 
  Country: None (occurrence: None)
  Receive Date: 20091214
  Receipt Date: 20091211
  Transmission Date: 20100525
  Serious: Yes (Hospitalization)
  Sender: FDA-Public Use
  Company Number: FR-WYE-H12201109

PATIENT
  Age: 33 Year
  Sex: Male

DRUGS (1)
  1. ADVIL [Suspect]
     Indication: DENTAL DISCOMFORT
     Route: 048

REACTIONS (1)
  - LEUKOCYTOCLASTIC VASCULITIS [None]
